FAERS Safety Report 7514895-6 (Version None)
Quarter: 2011Q2

REPORT INFORMATION
  Report Type: 
  Country: None (occurrence: None)
  Receive Date: 20110425
  Receipt Date: 20090402
  Transmission Date: 20111010
  Serious: Yes (Hospitalization)
  Sender: FDA-Public Use
  Company Number: MC200900129

PATIENT
  Age: 40 Year
  Sex: Male
  Weight: 91 kg

DRUGS (2)
  1. ANGIOMAX [Suspect]
     Dosage: 66, BOLUS, INTRAVENOUS, 154, INTRAVENOUS
     Route: 042
     Dates: start: 20060523, end: 20060523
  2. ANGIOMAX [Suspect]
     Dosage: 66, BOLUS, INTRAVENOUS, 154, INTRAVENOUS
     Route: 042
     Dates: start: 20060523, end: 20060523

REACTIONS (1)
  - NON-CARDIAC CHEST PAIN [None]
